FAERS Safety Report 20581516 (Version 1)
Quarter: 2022Q1

REPORT INFORMATION
  Report Type: Report from Study
  Country: CA (occurrence: CA)
  Receive Date: 20220311
  Receipt Date: 20220311
  Transmission Date: 20220423
  Serious: Yes (Other)
  Sender: FDA-Public Use
  Company Number: CA-UCBSA-2021058222

PATIENT
  Age: 16 Year
  Sex: Male

DRUGS (5)
  1. BRIVARACETAM [Suspect]
     Active Substance: BRIVARACETAM
     Indication: Temporal lobe epilepsy
     Dosage: 100 MILLIGRAM, 2X/DAY (BID)
     Dates: start: 20211109
  2. BRIVARACETAM [Suspect]
     Active Substance: BRIVARACETAM
     Indication: Focal dyscognitive seizures
  3. BRIVARACETAM [Suspect]
     Active Substance: BRIVARACETAM
     Indication: Off label use
  4. LAMICTAL [Concomitant]
     Active Substance: LAMOTRIGINE
     Indication: Product used for unknown indication
  5. CLOBAZAM [Concomitant]
     Active Substance: CLOBAZAM
     Indication: Product used for unknown indication

REACTIONS (5)
  - Seizure [Unknown]
  - Aggression [Unknown]
  - Anger [Unknown]
  - Behaviour disorder [Unknown]
  - Off label use [Unknown]

NARRATIVE: CASE EVENT DATE: 20211109
